FAERS Safety Report 7713508-8 (Version None)
Quarter: 2011Q3

REPORT INFORMATION
  Report Type: 
  Country: None (occurrence: None)
  Receive Date: 20110826
  Receipt Date: 20110820
  Transmission Date: 20111222
  Serious: Yes (Hospitalization, Other)
  Sender: FDA-Public Use
  Company Number: US-ABBOTT-11P-163-0731710-00

PATIENT
  Sex: Female
  Weight: 114.41 kg

DRUGS (3)
  1. APRISO [Concomitant]
     Indication: CROHN'S DISEASE
     Route: 048
  2. HUMIRA [Suspect]
     Indication: CROHN'S DISEASE
     Dates: start: 20100901, end: 20110801
  3. IMMUNOSUPPRESSIVE MEDICATIONS [Concomitant]
     Indication: PRODUCT USED FOR UNKNOWN INDICATION

REACTIONS (13)
  - PAIN [None]
  - SCAB [None]
  - BLISTER [None]
  - LOCAL SWELLING [None]
  - COLONIC OBSTRUCTION [None]
  - RASH VESICULAR [None]
  - RASH [None]
  - CELLULITIS [None]
  - HERPES ZOSTER [None]
  - COLONIC POLYP [None]
  - STAPHYLOCOCCAL INFECTION [None]
  - GASTROINTESTINAL MOTILITY DISORDER [None]
  - SECRETION DISCHARGE [None]
